FAERS Safety Report 18960247 (Version 1)
Quarter: 2021Q1

REPORT INFORMATION
  Report Type: Spontaneous
  Country: US (occurrence: US)
  Receive Date: 20210303
  Receipt Date: 20210303
  Transmission Date: 20210420
  Serious: Yes (Other)
  Sender: FDA-Public Use
  Company Number: US-SA-2021SA063110

PATIENT
  Sex: Male

DRUGS (3)
  1. TOUJEO [Suspect]
     Active Substance: INSULIN GLARGINE
     Indication: TYPE 2 DIABETES MELLITUS
     Dosage: UNK
     Dates: start: 2020
  2. GLUCOPHAGE [Concomitant]
     Active Substance: METFORMIN HYDROCHLORIDE
  3. GLUCOTROL [Concomitant]
     Active Substance: GLIPIZIDE

REACTIONS (2)
  - Diabetes mellitus inadequate control [Unknown]
  - Product storage error [Unknown]
